FAERS Safety Report 18869986 (Version 1)
Quarter: 2021Q1

REPORT INFORMATION
  Report Type: Spontaneous
  Country: DE (occurrence: DE)
  Receive Date: 20210210
  Receipt Date: 20210210
  Transmission Date: 20210420
  Serious: Yes (Other)
  Sender: FDA-Public Use
  Company Number: DE-AUROBINDO-AUR-APL-2021-005272

PATIENT

DRUGS (10)
  1. DIAZEPAM. [Suspect]
     Active Substance: DIAZEPAM
     Indication: SCHIZOAFFECTIVE DISORDER
     Dosage: 30 MILLIGRAM, DAILY
     Route: 064
  2. SODIUM CITRATE. [Suspect]
     Active Substance: SODIUM CITRATE
     Indication: DRUG THERAPY
     Dosage: 30 MILLILITER (0.3 MOLAR)
     Route: 064
  3. METHOHEXITAL [Suspect]
     Active Substance: METHOHEXITAL
     Indication: ANAESTHESIA
     Dosage: 1 MILLIGRAM/KILOGRAM
     Route: 064
  4. QUETIAPINE. [Suspect]
     Active Substance: QUETIAPINE
     Indication: SCHIZOAFFECTIVE DISORDER
     Dosage: 1000 MILLIGRAM, DAILY
     Route: 064
  5. MIDAZOLAM. [Suspect]
     Active Substance: MIDAZOLAM
     Indication: SEIZURE
     Dosage: 1.5 MILLIGRAM
     Route: 064
  6. SUCCINYLCHOLINE [Suspect]
     Active Substance: SUCCINYLCHOLINE
     Indication: MUSCLE RELAXANT THERAPY
     Dosage: 1.5 MILLIGRAM/KILOGRAM
     Route: 064
  7. RISPERIDONE. [Suspect]
     Active Substance: RISPERIDONE
     Indication: SCHIZOAFFECTIVE DISORDER
     Dosage: 7 MILLIGRAM, DAILY
     Route: 064
  8. GLYCOPYRRONIUM BROMIDE [Suspect]
     Active Substance: GLYCOPYRRONIUM
     Indication: PROPHYLAXIS
     Dosage: 0.2 MILLIGRAM
     Route: 064
  9. METHOHEXITAL [Suspect]
     Active Substance: METHOHEXITAL
     Dosage: 1.6 MILLIGRAM/KILOGRAM
     Route: 042
  10. QUETIAPINE. [Suspect]
     Active Substance: QUETIAPINE
     Dosage: 700 MILLIGRAM, DAILY
     Route: 064

REACTIONS (2)
  - Bradycardia foetal [Unknown]
  - Foetal exposure during pregnancy [Unknown]
